FAERS Safety Report 4432409-4 (Version None)
Quarter: 2004Q3

REPORT INFORMATION
  Report Type: 
  Country: None (occurrence: None)
  Receive Date: 20040825
  Receipt Date: 20040814
  Transmission Date: 20050211
  Serious: Yes (Other)
  Sender: FDA-Public Use
  Company Number: GB-GLAXOSMITHKLINE-B0342506A

PATIENT
  Age: 46 Year
  Sex: Male
  Weight: 80 kg

DRUGS (1)
  1. RANITIDINE [Suspect]
     Indication: DYSPEPSIA
     Dosage: 150MG TWICE PER DAY
     Route: 048
     Dates: start: 20040726, end: 20040730

REACTIONS (3)
  - DEPRESSION [None]
  - DISTURBANCE IN ATTENTION [None]
  - LETHARGY [None]
